FAERS Safety Report 8612084-5 (Version None)
Quarter: 2012Q3

REPORT INFORMATION
  Report Type: 
  Country: None (occurrence: None)
  Receive Date: 20120822
  Receipt Date: 20120814
  Transmission Date: 20120928
  Serious: Yes (Hospitalization, Other)
  Sender: FDA-Public Use
  Company Number: US-MPIJNJ-2012-04180

PATIENT
  Sex: Male
  Weight: 86.2 kg

DRUGS (1)
  1. VELCADE [Suspect]
     Indication: MULTIPLE MYELOMA
     Dosage: 1.3 MG/M2, CYCLIC
     Route: 058
     Dates: start: 20120417, end: 20120504

REACTIONS (6)
  - THROMBOCYTOPENIA [None]
  - VOMITING [None]
  - PYREXIA [None]
  - NAUSEA [None]
  - HYPOTENSION [None]
  - SYSTEMIC INFLAMMATORY RESPONSE SYNDROME [None]
